FAERS Safety Report 10025215 (Version 2)
Quarter: 2014Q1

REPORT INFORMATION
  Report Type: Report from Study
  Country: CA (occurrence: CA)
  Receive Date: 20140320
  Receipt Date: 20140320
  Transmission Date: 20141002
  Serious: Yes (Hospitalization, Other)
  Sender: FDA-Public Use
  Company Number: CA-BRISTOL-MYERS SQUIBB COMPANY-16058752

PATIENT
  Age: 63 Year
  Sex: Female
  Weight: 75 kg

DRUGS (8)
  1. ORENCIA FOR INJ 250 MG/VIAL [Suspect]
     Indication: RHEUMATOID ARTHRITIS
     Dosage: LASTINF:22AUG11;1G64569,:JUL15?4APR11,9JAN12,28MY12,15OT12,AL15?3A77129,JL15?3C83972/S15:250MG
     Route: 042
     Dates: start: 20110404
  2. ARTHROTEC [Concomitant]
  3. OXYCODONE [Concomitant]
  4. NEXIUM [Concomitant]
  5. FOLIC ACID [Concomitant]
  6. METHOTREXATE [Concomitant]
  7. SYNTHROID [Concomitant]
  8. GOLD SALTS [Concomitant]

REACTIONS (20)
  - Haemophilus infection [Unknown]
  - Hearing impaired [Not Recovered/Not Resolved]
  - Oesophageal compression [Unknown]
  - Surgery [Unknown]
  - Synovial cyst [Unknown]
  - Drug ineffective [Unknown]
  - Insomnia [Unknown]
  - Dry mouth [Unknown]
  - Rash erythematous [Not Recovered/Not Resolved]
  - Oral candidiasis [Unknown]
  - Pruritus [Not Recovered/Not Resolved]
  - Dry skin [Not Recovered/Not Resolved]
  - Dental caries [Unknown]
  - Enamel anomaly [Unknown]
  - Depression [Unknown]
  - Herpes zoster [Unknown]
  - Rheumatoid arthritis [Unknown]
  - Pain [Not Recovered/Not Resolved]
  - Musculoskeletal stiffness [Not Recovered/Not Resolved]
  - Thyroid mass [Unknown]
